FAERS Safety Report 19977358 (Version 2)
Quarter: 2021Q4

REPORT INFORMATION
  Report Type: Spontaneous
  Country: JP (occurrence: JP)
  Receive Date: 20211020
  Receipt Date: 20211107
  Transmission Date: 20220303
  Serious: Yes (Hospitalization)
  Sender: FDA-Public Use
  Company Number: JP-NOVARTISPH-NVSC2021JP236906

PATIENT
  Age: 73 Year
  Sex: Male

DRUGS (8)
  1. ETOPOSIDE [Suspect]
     Active Substance: ETOPOSIDE
     Indication: Small cell lung cancer extensive stage
     Dosage: 50 MG/M2 DAY 1 AND 3 (5 PERCENT GLUCOSE SOLUTION 250 ML)
     Route: 065
  2. ETOPOSIDE [Suspect]
     Active Substance: ETOPOSIDE
     Dosage: 40 MG/M2, CYCLIC
     Route: 065
  3. DEXAMETHASONE [Suspect]
     Active Substance: DEXAMETHASONE
     Indication: Small cell lung cancer extensive stage
     Dosage: 6.6 MG, CYCLIC
     Route: 065
  4. CARBOPLATIN [Suspect]
     Active Substance: CARBOPLATIN
     Indication: Small cell lung cancer extensive stage
     Dosage: 300 MG/M2
     Route: 065
  5. CARBOPLATIN [Suspect]
     Active Substance: CARBOPLATIN
     Dosage: 240 MG/M2, CYCLIC
     Route: 065
  6. CARBOPLATIN [Suspect]
     Active Substance: CARBOPLATIN
     Dosage: 210 MG/M2, CYCLIC
     Route: 065
  7. ATEZOLIZUMAB [Suspect]
     Active Substance: ATEZOLIZUMAB
     Indication: Small cell lung cancer extensive stage
     Dosage: 1200 MG/BODY, CYCLIC DAY 1 (SALINE SOLUTION 250 ML) DAY 1
     Route: 065
  8. GRANISETRON [Suspect]
     Active Substance: GRANISETRON
     Indication: Small cell lung cancer extensive stage
     Dosage: 3.0 MG, CYCLIC DAY 1,2 AND 3 (SALINE SOLUTION 100 ML)
     Route: 065

REACTIONS (2)
  - Febrile neutropenia [Unknown]
  - Therapy partial responder [Unknown]
